FAERS Safety Report 6257121-0 (Version None)
Quarter: 2009Q3

REPORT INFORMATION
  Report Type: 
  Country: None (occurrence: None)
  Receive Date: 20090706
  Receipt Date: 20090625
  Transmission Date: 20100115
  Serious: Yes (Other)
  Sender: FDA-Public Use
  Company Number: B0581913A

PATIENT
  Sex: Female
  Weight: 76 kg

DRUGS (1)
  1. PAROXETINE HCL [Suspect]
     Indication: MOOD SWINGS
     Dosage: 20MG PER DAY
     Route: 048
     Dates: start: 20090301

REACTIONS (7)
  - DIZZINESS [None]
  - LIBIDO DECREASED [None]
  - LISTLESS [None]
  - MEMORY IMPAIRMENT [None]
  - SLEEP DISORDER [None]
  - VISUAL IMPAIRMENT [None]
  - WEIGHT INCREASED [None]
